FAERS Safety Report 4290449-2 (Version None)
Quarter: 2004Q1

REPORT INFORMATION
  Report Type: 
  Country: None (occurrence: None)
  Receive Date: 20040210
  Receipt Date: 20040203
  Transmission Date: 20041129
  Serious: Yes (Death)
  Sender: FDA-Public Use
  Company Number: WAES 0402CHE00002

PATIENT
  Age: 69 Year
  Sex: Male

DRUGS (3)
  1. ENALAPRIL MALEATE [Concomitant]
     Route: 048
  2. ZETIA [Suspect]
     Route: 048
  3. VENLAFAXINE HYDROCHLORIDE [Concomitant]
     Route: 048

REACTIONS (1)
  - DEATH [None]
